FAERS Safety Report 7553791-5 (Version None)
Quarter: 2011Q2

REPORT INFORMATION
  Report Type: 
  Country: None (occurrence: None)
  Receive Date: 20110617
  Receipt Date: 20110604
  Transmission Date: 20111010
  Serious: Yes (Hospitalization)
  Sender: FDA-Public Use
  Company Number: CA-JNJFOC-20110311980

PATIENT
  Sex: Female
  Weight: 76 kg

DRUGS (3)
  1. REMICADE [Suspect]
     Route: 042
     Dates: start: 20101022
  2. REMICADE [Suspect]
     Indication: CROHN'S DISEASE
     Route: 042
     Dates: start: 20110604
  3. REMICADE [Suspect]
     Route: 042
     Dates: start: 20110101

REACTIONS (2)
  - ABDOMINAL PAIN [None]
  - VOMITING [None]
